FAERS Safety Report 6787315-7 (Version None)
Quarter: 2010Q2

REPORT INFORMATION
  Report Type: 
  Country: None (occurrence: None)
  Receive Date: 20100623
  Receipt Date: 20060826
  Transmission Date: 20101027
  Serious: No
  Sender: FDA-Public Use
  Company Number: US-PFIZER INC-2006105033

PATIENT
  Sex: Male

DRUGS (1)
  1. ACCURETIC [Suspect]
     Indication: HYPERTENSION
     Dosage: 20/12.5 MG
     Route: 048
     Dates: start: 20060101

REACTIONS (2)
  - BACK PAIN [None]
  - GASTROOESOPHAGEAL REFLUX DISEASE [None]
